FAERS Safety Report 7720810-2 (Version None)
Quarter: 2011Q3

REPORT INFORMATION
  Report Type: 
  Country: None (occurrence: None)
  Receive Date: 20110825
  Receipt Date: 20110811
  Transmission Date: 20111222
  Serious: Yes (Hospitalization)
  Sender: FDA-Public Use
  Company Number: 15953367

PATIENT
  Age: 80 Year
  Sex: Female

DRUGS (7)
  1. ENOXAPARIN SODIUM [Suspect]
     Indication: EMBOLISM
     Dosage: 1.1 MILLIGRAM
     Route: 058
     Dates: start: 20110611, end: 20110620
  2. SEROXAT (PAROXETINE HCL) [Concomitant]
  3. APIXABAN [Suspect]
     Indication: EMBOLISM
     Dosage: 10 MILLIGRAM 1 DAY
     Route: 048
     Dates: start: 20110611
  4. WARFARIN SODIUM [Suspect]
     Indication: EMBOLISM
     Dosage: 4 MILLIGRAM 1 DAY
     Route: 048
     Dates: start: 20110611
  5. PLACEBO [Suspect]
     Indication: EMBOLISM
     Dates: start: 20110611
  6. PERIDONE (DOMPERIDONE) [Concomitant]
  7. LANSOPRAZOLE [Concomitant]

REACTIONS (2)
  - DISCOMFORT [None]
  - ABDOMINAL PAIN [None]
